FAERS Safety Report 8900581 (Version 1)
Quarter: 2012Q4

REPORT INFORMATION
  Report Type: 
  Country: CA (occurrence: CA)
  Receive Date: 20121109
  Receipt Date: 20121109
  Transmission Date: 20130627
  Serious: Yes (Hospitalization, Other)
  Sender: FDA-Public Use
  Company Number: PHMT2006CA01030

PATIENT
  Sex: Female

DRUGS (4)
  1. SANDOSTATIN LAR [Suspect]
     Indication: CARCINOID SYNDROME
     Dosage: 50 mg every 3 weeks
     Dates: start: 20050922
  2. SANDOSTATIN LAR [Suspect]
     Dosage: 60 mg every 3 weeks
     Dates: start: 20060112
  3. LIPITOR [Concomitant]
  4. VITAMIN C [Concomitant]

REACTIONS (21)
  - Hepatic artery embolism [Unknown]
  - Loss of consciousness [Unknown]
  - Vomiting [Unknown]
  - Diarrhoea [Unknown]
  - Dehydration [Unknown]
  - Blood pressure diastolic decreased [Unknown]
  - Flushing [Unknown]
  - Palpitations [Unknown]
  - Hepatic pain [Unknown]
  - Injection site reaction [Unknown]
  - Injection site erythema [Unknown]
  - Hunger [Unknown]
  - Weight decreased [Unknown]
  - Hypoglycaemia [Unknown]
  - Pruritus [Unknown]
  - Abdominal distension [Unknown]
  - Abdominal discomfort [Unknown]
  - Heart rate decreased [Unknown]
  - Injection site pain [Unknown]
  - Hypothyroidism [Unknown]
  - Asthenia [Unknown]
